FAERS Safety Report 7285659-6 (Version None)
Quarter: 2011Q1

REPORT INFORMATION
  Report Type: 
  Country: None (occurrence: None)
  Receive Date: 20110210
  Receipt Date: 20110207
  Transmission Date: 20110831
  Serious: Yes (Hospitalization)
  Sender: FDA-Public Use
  Company Number: A0912573A

PATIENT
  Sex: Male

DRUGS (1)
  1. AVODART [Suspect]
     Dosage: .5MG UNKNOWN
     Route: 065
     Dates: start: 20050505

REACTIONS (1)
  - ADVERSE EVENT [None]
